FAERS Safety Report 9485929 (Version 1)
Quarter: 2013Q3

REPORT INFORMATION
  Report Type: Spontaneous
  Country: US (occurrence: None)
  Receive Date: 20130813
  Receipt Date: 20130813
  Transmission Date: 20140515
  Serious: Yes (Other)
  Sender: FDA-Public Use
  Company Number: AG-2012-1421

PATIENT
  Age: 59 Year
  Sex: Female
  Weight: 62 kg

DRUGS (5)
  1. CHLORAMBUCIL [Suspect]
     Indication: CHRONIC MYELOID LEUKAEMIA
     Dosage: D1+D15/28D
     Route: 048
     Dates: start: 20120516
  2. OBINUTUZUMAB [Suspect]
     Route: 042
  3. ENALAPRIL [Concomitant]
  4. SULFAMETHOXAZOLE AND TRIMETHOPRIM [Concomitant]
  5. ALLOPURINOL(ALLUPURINOL) [Concomitant]

REACTIONS (1)
  - Febrile neutropenia [None]
